FAERS Safety Report 8094277-1 (Version None)
Quarter: 2012Q1

REPORT INFORMATION
  Report Type: 
  Country: None (occurrence: None)
  Receive Date: 20120130
  Receipt Date: 20120127
  Transmission Date: 20120608
  Serious: Yes (Other)
  Sender: FDA-Public Use
  Company Number: IT-SHIRE-SPV1-2011-01439

PATIENT
  Sex: Female

DRUGS (1)
  1. ANAGRELIDE HYDROCHLORIDE [Suspect]
     Indication: ESSENTIAL THROMBOCYTHAEMIA
     Dosage: 5 DF, 1X/DAY:QD
     Dates: start: 20060101, end: 20120101

REACTIONS (2)
  - TACHYCARDIA [None]
  - MYELOFIBROSIS [None]
